FAERS Safety Report 4322895-2 (Version None)
Quarter: 2004Q1

REPORT INFORMATION
  Report Type: 
  Country: None (occurrence: None)
  Receive Date: 20040324
  Receipt Date: 20040211
  Transmission Date: 20041129
  Serious: Yes (Hospitalization)
  Sender: FDA-Public Use
  Company Number: WAES 0402DEU00078

PATIENT
  Age: 64 Year
  Sex: Male
  Weight: 105 kg

DRUGS (7)
  1. PROSCAR [Suspect]
     Indication: BENIGN PROSTATIC HYPERPLASIA
     Route: 048
     Dates: start: 19990201
  2. FUROSEMIDE SODIUM [Concomitant]
  3. METOPROLOL [Concomitant]
  4. PHENPROCOUMON [Concomitant]
     Route: 048
  5. TAMSULOSIN HYDROCHLORIDE [Concomitant]
     Route: 048
  6. ACETYLDIGOXIN [Concomitant]
  7. ENALAPRIL MALEATE [Concomitant]
     Route: 048

REACTIONS (1)
  - PROSTATE CANCER [None]
